FAERS Safety Report 13363974 (Version 3)
Quarter: 2018Q2

REPORT INFORMATION
  Report Type: Report from Study
  Country: BR (occurrence: BR)
  Receive Date: 20170323
  Receipt Date: 20180423
  Transmission Date: 20180711
  Serious: Yes (Death, Hospitalization, Other)
  Sender: FDA-Public Use
  Company Number: PHHY2017BR042967

PATIENT
  Sex: Male
  Weight: 2.05 kg

DRUGS (3)
  1. FOLIC [Concomitant]
     Active Substance: FOLIC ACID
     Indication: FOETAL EXPOSURE DURING PREGNANCY
     Dosage: MATERNAL DOSE: 1 DF, TIW
     Route: 064
  2. EXJADE [Suspect]
     Active Substance: DEFERASIROX
     Indication: FOETAL EXPOSURE DURING PREGNANCY
     Dosage: 1500 MG, MATERNAL DOSE
     Route: 064
  3. EXJADE [Suspect]
     Active Substance: DEFERASIROX
     Dosage: 3 DF, QD
     Route: 064

REACTIONS (5)
  - Premature baby [Unknown]
  - Cyanosis [Unknown]
  - Bone disorder [Fatal]
  - Foetal exposure during pregnancy [Unknown]
  - Low birth weight baby [Unknown]
